FAERS Safety Report 16095024 (Version 2)
Quarter: 2019Q2

REPORT INFORMATION
  Report Type: Spontaneous
  Country: PL (occurrence: PL)
  Receive Date: 20190320
  Receipt Date: 20190430
  Transmission Date: 20190711
  Serious: Yes (Death, Hospitalization, Other)
  Sender: FDA-Public Use
  Company Number: PL-SA-2019SA074232

PATIENT
  Age: 8 Month
  Sex: Male

DRUGS (12)
  1. FLUDARABINE PHOSPHATE. [Suspect]
     Active Substance: FLUDARABINE PHOSPHATE
     Indication: BONE MARROW CONDITIONING REGIMEN
     Dosage: 4X40 MG/M2, INJECTION
     Route: 042
  2. VFEND [Concomitant]
     Active Substance: VORICONAZOLE
     Indication: ANTIFUNGAL PROPHYLAXIS
     Dosage: 2X3 MG/KG/DAY
     Route: 048
  3. VFEND [Concomitant]
     Active Substance: VORICONAZOLE
     Dosage: 2X6 MG/KG/DAY
     Route: 042
     Dates: end: 20110628
  4. TRAMAL [Concomitant]
     Active Substance: TRAMADOL
     Indication: ANALGESIC THERAPY
  5. AMBISOME [Concomitant]
     Active Substance: AMPHOTERICIN B
     Dosage: 1X3 MG/KG, QD
     Route: 042
     Dates: start: 20110628
  6. SPORANOX [Concomitant]
     Active Substance: ITRACONAZOLE
     Indication: ANTIFUNGAL PROPHYLAXIS
     Dosage: 1X3 MG/KG QD
     Route: 048
  7. FUNGIZONE [Concomitant]
     Active Substance: AMPHOTERICIN B
     Indication: PROPHYLAXIS
     Dosage: 4X12 MG/KG
     Route: 048
  8. BUSILVEX [Suspect]
     Active Substance: BUSULFAN
     Indication: BONE MARROW CONDITIONING REGIMEN
     Dosage: 4X4X1.0 MG/KG
     Route: 042
  9. SOLU-MEDROL [Concomitant]
     Active Substance: METHYLPREDNISOLONE SODIUM SUCCINATE
     Indication: INFLAMMATORY BOWEL DISEASE
  10. CAMPATH [Suspect]
     Active Substance: ALEMTUZUMAB
     Indication: PROPHYLAXIS AGAINST GRAFT VERSUS HOST DISEASE
     Dosage: 3X 0.2 MG/KG
     Route: 065
  11. AMBISOME [Concomitant]
     Active Substance: AMPHOTERICIN B
     Dosage: DOSE INCREASED 1X5 MG/KG/DAY
     Route: 042
  12. VFEND [Concomitant]
     Active Substance: VORICONAZOLE
     Dosage: DOUBLED DOSE (2X6 MG/KG/DAY)
     Route: 048

REACTIONS (9)
  - Epilepsy [Unknown]
  - Cerebral aspergillosis [Fatal]
  - Hemiplegia [Fatal]
  - Hydrocephalus [Unknown]
  - Altered state of consciousness [Unknown]
  - Neurological decompensation [Fatal]
  - Intracranial pressure increased [Unknown]
  - Loss of consciousness [Unknown]
  - Off label use [Unknown]

NARRATIVE: CASE EVENT DATE: 20110705
